FAERS Safety Report 18788037 (Version 1)
Quarter: 2021Q1

REPORT INFORMATION
  Report Type: Spontaneous
  Country: US (occurrence: US)
  Receive Date: 20210126
  Receipt Date: 20210126
  Transmission Date: 20210419
  Serious: No
  Sender: FDA-Public Use
  Company Number: None

PATIENT
  Age: 76 Year
  Sex: Male
  Weight: 109.5 kg

DRUGS (19)
  1. OLMESARTAN MEDOXOMIL. [Concomitant]
     Active Substance: OLMESARTAN MEDOXOMIL
  2. METOPROLOL TARTRATE. [Concomitant]
     Active Substance: METOPROLOL TARTRATE
  3. SPIRONOLACTONE. [Concomitant]
     Active Substance: SPIRONOLACTONE
  4. PROCHLORPERAZINE MALEATE. [Concomitant]
     Active Substance: PROCHLORPERAZINE MALEATE
  5. OMEPRAZOLE. [Concomitant]
     Active Substance: OMEPRAZOLE
  6. AMLODIPINE BESYLATE. [Concomitant]
     Active Substance: AMLODIPINE BESYLATE
  7. FERROUS SULFATE. [Concomitant]
     Active Substance: FERROUS SULFATE
  8. HYDROCHLOROTHIAZIDE. [Concomitant]
     Active Substance: HYDROCHLOROTHIAZIDE
  9. METAMUCIL [Concomitant]
     Active Substance: PLANTAGO SEED
  10. ERLEADA [Suspect]
     Active Substance: APALUTAMIDE
     Indication: PROSTATE CANCER
     Route: 048
     Dates: start: 20200724, end: 20210126
  11. CITALOPRAM HYDROBROMIDE. [Concomitant]
     Active Substance: CITALOPRAM HYDROBROMIDE
  12. IRON [Concomitant]
     Active Substance: IRON
  13. MULTI FOR HIM [Concomitant]
  14. LEUPROLIDE ACETATE. [Concomitant]
     Active Substance: LEUPROLIDE ACETATE
  15. CENTRUM [Concomitant]
     Active Substance: VITAMINS
  16. METFORMIN HCL [Concomitant]
     Active Substance: METFORMIN HYDROCHLORIDE
  17. ONDANSETRON HCL [Concomitant]
     Active Substance: ONDANSETRON HYDROCHLORIDE
  18. PRAVASTATIN SODIUM. [Concomitant]
     Active Substance: PRAVASTATIN SODIUM
  19. GLIMEPIRIDE. [Concomitant]
     Active Substance: GLIMEPIRIDE

REACTIONS (1)
  - Disease progression [None]

NARRATIVE: CASE EVENT DATE: 20210126
